FAERS Safety Report 23645963 (Version 1)
Quarter: 2024Q1

REPORT INFORMATION
  Report Type: Spontaneous
  Country: IT (occurrence: IT)
  Receive Date: 20240319
  Receipt Date: 20240319
  Transmission Date: 20240410
  Serious: Yes (Other)
  Sender: FDA-Public Use
  Company Number: None

PATIENT
  Age: 78 Year
  Sex: Male
  Weight: 64 kg

DRUGS (4)
  1. AFLIBERCEPT [Suspect]
     Active Substance: AFLIBERCEPT
     Indication: Colon cancer stage IV
     Dosage: 250 MILLIGRAM
     Route: 042
     Dates: start: 20240111, end: 20240111
  2. FLUOROURACIL [Suspect]
     Active Substance: FLUOROURACIL
     Indication: Colon cancer stage IV
     Dosage: 500 MILLIGRAM
     Route: 042
     Dates: start: 20240111, end: 20240111
  3. IRINOTECAN [Suspect]
     Active Substance: IRINOTECAN
     Indication: Colon cancer stage IV
     Dosage: 240 MILLIGRAM, QOW
     Route: 042
     Dates: start: 20240111, end: 20240111
  4. LEVOLEUCOVORIN [Concomitant]
     Active Substance: LEVOLEUCOVORIN
     Indication: Product used for unknown indication
     Dosage: 500 MILLIGRAM
     Route: 065

REACTIONS (1)
  - Azotaemia [Recovering/Resolving]

NARRATIVE: CASE EVENT DATE: 20240122
